FAERS Safety Report 21846868 (Version 1)
Quarter: 2023Q1

REPORT INFORMATION
  Report Type: Spontaneous
  Country: US (occurrence: None)
  Receive Date: 20230110
  Receipt Date: 20230110
  Transmission Date: 20230418
  Serious: Yes (Hospitalization)
  Sender: FDA-Public Use
  Company Number: None

PATIENT
  Age: 75 Year
  Sex: Male
  Weight: 105.69 kg

DRUGS (6)
  1. ABIRATERONE [Suspect]
     Active Substance: ABIRATERONE
     Indication: Prostate cancer
     Dosage: 1000MG ONCE DAILY ORAL?
     Route: 048
     Dates: start: 202212
  2. FLUTICASONE [Concomitant]
     Active Substance: FLUTICASONE
  3. OLMESARTAN [Concomitant]
     Active Substance: OLMESARTAN
  4. OXYBUTYNIN [Concomitant]
     Active Substance: OXYBUTYNIN
  5. PREDNISONE [Concomitant]
     Active Substance: PREDNISONE
  6. DIETARY SUPPLEMENT [Concomitant]
     Active Substance: DIETARY SUPPLEMENT

REACTIONS (1)
  - COVID-19 [None]

NARRATIVE: CASE EVENT DATE: 20230103
